FAERS Safety Report 11805953 (Version 1)
Quarter: 2015Q4

REPORT INFORMATION
  Report Type: Report from Study
  Country: US (occurrence: US)
  Receive Date: 20151207
  Receipt Date: 20151207
  Transmission Date: 20160305
  Serious: Yes (Other)
  Sender: FDA-Public Use
  Company Number: US-BAYER-2015-474695

PATIENT
  Age: 30 Year
  Sex: Female

DRUGS (2)
  1. MIRENA [Suspect]
     Active Substance: LEVONORGESTREL
     Indication: CONTRACEPTION
     Dosage: UNK
  2. MIRENA [Suspect]
     Active Substance: LEVONORGESTREL
     Indication: CONTRACEPTION
     Dosage: 52 MG, UNK
     Route: 015

REACTIONS (6)
  - Intentional device misuse [Not Recovered/Not Resolved]
  - Embedded device [Not Recovered/Not Resolved]
  - Complication of device removal [None]
  - Product use issue [None]
  - Device dislocation [None]
  - Procedural pain [Recovered/Resolved]

NARRATIVE: CASE EVENT DATE: 2012
